FAERS Safety Report 7417289-7 (Version None)
Quarter: 2011Q2

REPORT INFORMATION
  Report Type: 
  Country: None (occurrence: None)
  Receive Date: 20110415
  Receipt Date: 20110412
  Transmission Date: 20111010
  Serious: Yes (Death, Other)
  Sender: FDA-Public Use
  Company Number: US-BRISTOL-MYERS SQUIBB COMPANY-15668940

PATIENT
  Age: 73 Year
  Sex: Female

DRUGS (4)
  1. LAMICTAL [Concomitant]
  2. TOPAMAX [Concomitant]
  3. ABILIFY [Suspect]
  4. PROZAC [Concomitant]

REACTIONS (2)
  - DEATH [None]
  - CARDIAC FAILURE CONGESTIVE [None]
